FAERS Safety Report 6930123-4 (Version None)
Quarter: 2010Q3

REPORT INFORMATION
  Report Type: 
  Country: None (occurrence: None)
  Receive Date: 20100817
  Receipt Date: 20100817
  Transmission Date: 20110219
  Serious: No
  Sender: FDA-Public Use
  Company Number: None

PATIENT
  Sex: Male

DRUGS (2)
  1. CIPRO [Suspect]
  2. BACTRIM [Suspect]

REACTIONS (4)
  - CHILLS [None]
  - CONSTIPATION [None]
  - PYREXIA [None]
  - TENDONITIS [None]
